FAERS Safety Report 20943198 (Version 1)
Quarter: 2022Q2

REPORT INFORMATION
  Report Type: Report from Study
  Country: US (occurrence: US)
  Receive Date: 20220610
  Receipt Date: 20220610
  Transmission Date: 20220720
  Serious: Yes (Death, Hospitalization, Other)
  Sender: FDA-Public Use
  Company Number: US-GILEAD-2022-0580149

PATIENT
  Age: 69 Year
  Sex: Female
  Weight: 96 kg

DRUGS (6)
  1. AXICABTAGENE CILOLEUCEL [Suspect]
     Active Substance: AXICABTAGENE CILOLEUCEL
     Indication: Diffuse large B-cell lymphoma
     Dosage: 2 X 10/6 CELLS/KG, ONCE
     Route: 042
     Dates: start: 20220420, end: 20220420
  2. FLUCONAZOLE [Concomitant]
     Active Substance: FLUCONAZOLE
     Dosage: UNK
     Dates: start: 20220425, end: 20220513
  3. ACYCLOVIR [Concomitant]
     Active Substance: ACYCLOVIR
     Dosage: UNK
     Dates: start: 20220427, end: 20220605
  4. MEPRON [Concomitant]
     Active Substance: ATOVAQUONE
     Dosage: UNK
     Dates: start: 20220415, end: 20220503
  5. PENTAMIDINE [Concomitant]
     Active Substance: PENTAMIDINE
     Dosage: UNK
     Dates: start: 20220501, end: 20220501
  6. PENTAMIDINE [Concomitant]
     Active Substance: PENTAMIDINE
     Dosage: UNK
     Dates: start: 20220601, end: 20220601

REACTIONS (9)
  - Death [Fatal]
  - Immune effector cell-associated neurotoxicity syndrome [Recovered/Resolved]
  - Cytokine release syndrome [Recovered/Resolved]
  - Neurotoxicity [Unknown]
  - Metabolic acidosis [Unknown]
  - Escherichia bacteraemia [Unknown]
  - Clostridium difficile colitis [Unknown]
  - Liver function test increased [Unknown]
  - Thrombocytopenia [Unknown]

NARRATIVE: CASE EVENT DATE: 20220424
